FAERS Safety Report 4489629-2 (Version None)
Quarter: 2004Q4

REPORT INFORMATION
  Report Type: 
  Country: None (occurrence: None)
  Receive Date: 20041028
  Receipt Date: 20041013
  Transmission Date: 20050328
  Serious: Yes (Hospitalization)
  Sender: FDA-Public Use
  Company Number: DSA_80690_2004

PATIENT
  Age: 26 Year
  Sex: Male
  Weight: 97.5234 kg

DRUGS (6)
  1. XYREM [Suspect]
     Indication: NARCOLEPSY
     Dosage: 5 ML TWICE NIGHTLY PO
     Route: 048
     Dates: start: 20040507
  2. DEPAKOTE [Concomitant]
  3. METOPROLOL SUCCINATE [Concomitant]
  4. PAROXETINE [Concomitant]
  5. RISPERDAL [Concomitant]
  6. AMBIEN [Concomitant]

REACTIONS (14)
  - BLOODY DISCHARGE [None]
  - BRAIN CONTUSION [None]
  - CATAPLEXY [None]
  - EXTRADURAL HAEMATOMA [None]
  - FALL [None]
  - HAEMORRHAGE [None]
  - HEAD INJURY [None]
  - HICCUPS [None]
  - HYPERVENTILATION [None]
  - NASAL DISORDER [None]
  - NUCLEAR MAGNETIC RESONANCE IMAGING BRAIN ABNORMAL [None]
  - SINUS DISORDER [None]
  - SINUSITIS [None]
  - SYNCOPE [None]
